FAERS Safety Report 4284938-4 (Version None)
Quarter: 2004Q1

REPORT INFORMATION
  Report Type: 
  Country: None (occurrence: None)
  Receive Date: 20040202
  Receipt Date: 20040120
  Transmission Date: 20041129
  Serious: Yes (Death, Hospitalization)
  Sender: FDA-Public Use
  Company Number: DE-JNJFOC-20031202741

PATIENT
  Age: 37 Year
  Sex: Female
  Weight: 73 kg

DRUGS (4)
  1. DOXORUBICIN HYDROCHLORIDE [Suspect]
     Indication: CERVIX CARCINOMA
     Dosage: SEE IMAGE
     Route: 042
     Dates: start: 20031020, end: 20031020
  2. DOXORUBICIN HYDROCHLORIDE [Suspect]
     Indication: CERVIX CARCINOMA
     Dosage: SEE IMAGE
     Route: 042
     Dates: start: 20031117, end: 20031117
  3. CARBOPLATIN [Suspect]
     Indication: CERVIX CARCINOMA
     Dosage: SEE IMAGE
     Route: 042
     Dates: start: 20031020, end: 20031020
  4. CARBOPLATIN [Suspect]
     Indication: CERVIX CARCINOMA
     Dosage: SEE IMAGE
     Route: 042
     Dates: start: 20031117, end: 20031117

REACTIONS (1)
  - PANCYTOPENIA [None]
